FAERS Safety Report 9714060 (Version 1)
Quarter: 2013Q4

REPORT INFORMATION
  Report Type: Spontaneous
  Country: US (occurrence: US)
  Receive Date: 20131126
  Receipt Date: 20131126
  Transmission Date: 20140711
  Serious: No
  Sender: FDA-Public Use
  Company Number: US-GILEAD-2008-0018780

PATIENT
  Sex: Female
  Weight: 80.74 kg

DRUGS (14)
  1. LETAIRIS [Suspect]
     Indication: PULMONARY ARTERIAL HYPERTENSION
     Route: 048
     Dates: start: 20081004, end: 20081024
  2. REVATIO [Concomitant]
  3. ATENOLOL [Concomitant]
  4. CRESTOR [Concomitant]
  5. ASA LO-DOSE [Concomitant]
  6. LEVOXYL [Concomitant]
  7. ALBUTEROL [Concomitant]
  8. SINGULAIR [Concomitant]
  9. PULMICORT [Concomitant]
  10. ALLEGRA [Concomitant]
  11. TRAMADOL HCL [Concomitant]
  12. PRILOSEC [Concomitant]
  13. NEURONTIN [Concomitant]
  14. PREMARIN [Concomitant]

REACTIONS (3)
  - Abdominal pain upper [Unknown]
  - Constipation [Unknown]
  - Headache [Unknown]
